FAERS Safety Report 5608886-X (Version None)
Quarter: 2008Q1

REPORT INFORMATION
  Report Type: 
  Country: None (occurrence: None)
  Receive Date: 20080129
  Receipt Date: 20080129
  Transmission Date: 20080703
  Serious: Yes (Hospitalization)
  Sender: FDA-Public Use
  Company Number: None

PATIENT
  Age: 17 Year
  Sex: Female
  Weight: 60.3284 kg

DRUGS (1)
  1. TOPAMAX [Suspect]
     Indication: MIGRAINE PROPHYLAXIS
     Dosage: ONE TABLET DAILY PO
     Route: 048
     Dates: start: 20080118, end: 20080124

REACTIONS (3)
  - EYE SWELLING [None]
  - GLAUCOMA [None]
  - VISION BLURRED [None]
